FAERS Safety Report 23588786 (Version 1)
Quarter: 2024Q1

REPORT INFORMATION
  Report Type: Spontaneous
  Country: CN (occurrence: CN)
  Receive Date: 20240303
  Receipt Date: 20240303
  Transmission Date: 20240410
  Serious: Yes (Life-Threatening)
  Sender: FDA-Public Use
  Company Number: CN-ROCHE-3519204

PATIENT
  Age: 48 Year
  Sex: Female

DRUGS (4)
  1. XELODA [Suspect]
     Active Substance: CAPECITABINE
     Indication: Colon cancer
     Dosage: BID, APPROVAL NO. GYZZ H20073024
     Route: 048
     Dates: start: 20240202, end: 20240202
  2. XELODA [Suspect]
     Active Substance: CAPECITABINE
     Dosage: BID, APPROVAL NO. GYZZ H20073024
     Route: 048
     Dates: start: 20240203, end: 20240216
  3. BEVACIZUMAB [Suspect]
     Active Substance: BEVACIZUMAB
     Indication: Colon cancer
     Dosage: APPROVAL NO. GYZZ S20190040, INTRAVENOUS DRIP
     Route: 041
     Dates: start: 20240203, end: 20240203
  4. OXALIPLATIN [Suspect]
     Active Substance: OXALIPLATIN
     Indication: Colon cancer
     Dosage: IV DRIP; APPROVAL NO. GYZZ H20203216
     Route: 041
     Dates: start: 20240203, end: 20240203

REACTIONS (1)
  - Myelosuppression [Recovering/Resolving]

NARRATIVE: CASE EVENT DATE: 20240221
